FAERS Safety Report 8511144-7 (Version None)
Quarter: 2012Q3

REPORT INFORMATION
  Report Type: 
  Country: None (occurrence: None)
  Receive Date: 20120716
  Receipt Date: 20120702
  Transmission Date: 20120928
  Serious: Yes (Life-Threatening, Other)
  Sender: FDA-Public Use
  Company Number: JP-VERTEX PHARMACEUTICALS INC.-AE-2012-008852

PATIENT
  Age: 68 Year
  Sex: Male

DRUGS (15)
  1. REBETOL [Concomitant]
     Route: 048
     Dates: start: 20120316, end: 20120522
  2. TELAVIC (TELAPREVIR) [Suspect]
     Indication: HEPATITIS C
     Route: 048
     Dates: start: 20120316, end: 20120529
  3. REBETOL [Concomitant]
     Route: 048
     Dates: start: 20120523, end: 20120529
  4. NEO-MINOPHAGEN C [Concomitant]
     Dates: end: 20120425
  5. TELAVIC (TELAPREVIR) [Suspect]
     Route: 048
     Dates: start: 20120530, end: 20120604
  6. PEG-INTRON [Concomitant]
     Route: 058
     Dates: start: 20120502, end: 20120529
  7. PEG-INTRON [Concomitant]
     Route: 058
     Dates: start: 20120425, end: 20120501
  8. REBETOL [Concomitant]
     Route: 048
     Dates: start: 20120425
  9. PEG-INTRON [Concomitant]
     Route: 058
     Dates: start: 20120404, end: 20120417
  10. PEG-INTRON [Concomitant]
     Route: 058
     Dates: start: 20120323, end: 20120403
  11. PEG-INTRON [Concomitant]
     Route: 058
     Dates: start: 20120530, end: 20120530
  12. REBETOL [Concomitant]
     Route: 048
     Dates: start: 20120530, end: 20120603
  13. PEG-INTRON [Concomitant]
     Indication: HEPATITIS C
     Route: 058
     Dates: start: 20120316, end: 20120322
  14. PEG-INTRON [Concomitant]
     Route: 058
     Dates: start: 20120418, end: 20120424
  15. REBETOL [Concomitant]
     Indication: HEPATITIS C
     Route: 048
     Dates: start: 20120316, end: 20120424

REACTIONS (2)
  - ACUTE MYOCARDIAL INFARCTION [None]
  - ANAEMIA [None]
